FAERS Safety Report 20968610 (Version 1)
Quarter: 2022Q2

REPORT INFORMATION
  Report Type: Other
  Country: None (occurrence: JP)
  Receive Date: 20220616
  Receipt Date: 20220616
  Transmission Date: 20220720
  Serious: Yes (Other)
  Sender: FDA-Public Use
  Company Number: JP-B.Braun Medical Inc.-2129981

PATIENT
  Age: 72 Year
  Sex: Female

DRUGS (1)
  1. DEXTROSE MONOHYDRATE\THEOPHYLLINE\THEOPHYLLINE ANHYDROUS [Suspect]
     Active Substance: DEXTROSE MONOHYDRATE\THEOPHYLLINE\THEOPHYLLINE ANHYDROUS

REACTIONS (2)
  - Off label use [Unknown]
  - Delirium [Unknown]
